FAERS Safety Report 16973535 (Version 1)
Quarter: 2019Q4

REPORT INFORMATION
  Report Type: Report from Study
  Country: BR (occurrence: BR)
  Receive Date: 20191030
  Receipt Date: 20191030
  Transmission Date: 20200122
  Serious: Yes (Other)
  Sender: FDA-Public Use
  Company Number: BR-UCBSA-2019045507

PATIENT
  Age: 65 Year
  Sex: Female
  Weight: 60 kg

DRUGS (2)
  1. CERTOLIZUMAB PEGOL RA [Suspect]
     Active Substance: CERTOLIZUMAB PEGOL
     Indication: RHEUMATOID ARTHRITIS
     Dosage: 400 MILLIGRAM, EV 4 WEEKS
     Route: 058
     Dates: start: 201904, end: 201909
  2. PREDNISONA [Concomitant]
     Active Substance: PREDNISONE
     Indication: RHEUMATOID ARTHRITIS
     Dosage: 20 MILLIGRAM, ONCE DAILY (QD)
     Route: 048

REACTIONS (1)
  - Arthritis infective [Not Recovered/Not Resolved]

NARRATIVE: CASE EVENT DATE: 201909
